FAERS Safety Report 4894863-3 (Version None)
Quarter: 2006Q1

REPORT INFORMATION
  Report Type: 
  Country: None (occurrence: None)
  Receive Date: 20060124
  Receipt Date: 20060113
  Transmission Date: 20060701
  Serious: Yes (Life-Threatening)
  Sender: FDA-Public Use
  Company Number: 2006-CZ-00344

PATIENT
  Age: 62 Year
  Sex: Female

DRUGS (2)
  1. METRONIDAZOLE [Suspect]
     Indication: TOOTH DISORDER
     Dosage: 600 MG, 3 IN 1 D, ORAL
     Route: 048
     Dates: start: 20051213, end: 20051213
  2. ESCITALOPRAM OXALATE [Concomitant]

REACTIONS (1)
  - DRUG HYPERSENSITIVITY [None]
